FAERS Safety Report 10690924 (Version 9)
Quarter: 2016Q1

REPORT INFORMATION
  Report Type: Report from Study
  Country: US (occurrence: US)
  Receive Date: 20150105
  Receipt Date: 20160209
  Transmission Date: 20160525
  Serious: Yes (Hospitalization, Other)
  Sender: FDA-Public Use
  Company Number: US-SANOFI-AVENTIS-2013SA084439

PATIENT
  Age: 45 Year
  Sex: Male

DRUGS (2)
  1. AUBAGIO [Suspect]
     Active Substance: TERIFLUNOMIDE
     Indication: MULTIPLE SCLEROSIS
     Route: 048
     Dates: start: 20130802
  2. AUBAGIO [Suspect]
     Active Substance: TERIFLUNOMIDE
     Indication: MULTIPLE SCLEROSIS
     Route: 048
     Dates: start: 20130813, end: 20160127

REACTIONS (22)
  - Head injury [Unknown]
  - Sinusitis [Recovering/Resolving]
  - Somnolence [Unknown]
  - Cough [Unknown]
  - Balance disorder [Unknown]
  - Sneezing [Unknown]
  - Dysphagia [Unknown]
  - Condition aggravated [Unknown]
  - Prostatic disorder [Unknown]
  - Impaired work ability [Unknown]
  - Fall [Unknown]
  - Energy increased [Unknown]
  - Drug dose omission [Unknown]
  - Blindness [Not Recovered/Not Resolved]
  - Muscular weakness [Not Recovered/Not Resolved]
  - Amnesia [Unknown]
  - Depression [Unknown]
  - Chromaturia [Unknown]
  - Sleep disorder [Unknown]
  - Arthralgia [Not Recovered/Not Resolved]
  - Memory impairment [Unknown]
  - Incontinence [Not Recovered/Not Resolved]

NARRATIVE: CASE EVENT DATE: 2013
